APPROVED DRUG PRODUCT: PYRIDOSTIGMINE BROMIDE
Active Ingredient: PYRIDOSTIGMINE BROMIDE
Strength: 105MG
Dosage Form/Route: TABLET, EXTENDED RELEASE;ORAL
Application: N217604 | Product #001
Applicant: AMNEAL PHARMACEUTICALS LLC
Approved: Oct 4, 2024 | RLD: No | RS: No | Type: DISCN

PATENTS:
Patent 11478425 | Expires: Jun 18, 2038
Patent 12042559 | Expires: Jun 18, 2038
Patent 10925833 | Expires: Jun 18, 2038
Patent 12233166 | Expires: Jun 18, 2038
Patent 10987311 | Expires: Jun 18, 2038
Patent 10881617 | Expires: Jun 18, 2038
Patent 11666536 | Expires: Jun 18, 2038
Patent 11911515 | Expires: Jun 18, 2038
Patent 11229606 | Expires: Jun 18, 2038